FAERS Safety Report 22102161 (Version 1)
Quarter: 2023Q1

REPORT INFORMATION
  Report Type: Spontaneous
  Country: US (occurrence: None)
  Receive Date: 20230315
  Receipt Date: 20230315
  Transmission Date: 20230417
  Serious: Yes (Other)
  Sender: FDA-Public Use
  Company Number: None

PATIENT
  Age: 42 Year
  Sex: Female

DRUGS (9)
  1. CELECOXIB [Suspect]
     Active Substance: CELECOXIB
     Indication: Pain
     Dosage: OTHER QUANTITY : 1 CAPSULE(S);?FREQUENCY : TWICE A DAY;?
     Route: 048
     Dates: start: 20230306, end: 20230315
  2. XARELTO [Suspect]
     Active Substance: RIVAROXABAN
  3. SYNTHROID [Concomitant]
     Active Substance: LEVOTHYROXINE SODIUM
  4. EMERGEN-C [Concomitant]
     Active Substance: VITAMINS
  5. CITRUCEL [Concomitant]
     Active Substance: METHYLCELLULOSE (4000 MPA.S)
  6. PSYLLIUM [Concomitant]
     Active Substance: PLANTAGO SEED
  7. WEST WHEAT GRASS [Concomitant]
     Active Substance: PASCOPYRUM SMITHII POLLEN
  8. CREATINE [Concomitant]
     Active Substance: CREATINE
  9. COLLAGEN [Concomitant]
     Active Substance: COLLAGEN

REACTIONS (6)
  - Surgery [None]
  - Rash [None]
  - Drug ineffective [None]
  - Rash [None]
  - Rash [None]
  - Therapy cessation [None]

NARRATIVE: CASE EVENT DATE: 20230314
